FAERS Safety Report 10237161 (Version 1)
Quarter: 2014Q1

REPORT INFORMATION
  Report Type: Spontaneous
  Country: US (occurrence: None)
  Receive Date: 20140306
  Receipt Date: 20140306
  Transmission Date: 20141002
  Serious: Yes (Hospitalization)
  Sender: FDA-Public Use
  Company Number: 163-21880-13124899

PATIENT
  Age: 77 Year
  Sex: Male
  Weight: 108.4 kg

DRUGS (2)
  1. REVLIMIDE(LENALIDOMIDE)(25 MILLIGRAM, CAPSULES) [Suspect]
     Indication: PLASMA CELL MYELOMA
     Route: 048
     Dates: start: 201304
  2. WARFARIN SODIUM(WARFARIN SODIUM)(TABLETS) [Concomitant]

REACTIONS (2)
  - Dyspnoea [None]
  - Local swelling [None]
